FAERS Safety Report 23129818 (Version 1)
Quarter: 2023Q4

REPORT INFORMATION
  Report Type: Spontaneous
  Country: US (occurrence: None)
  Receive Date: 20231026
  Receipt Date: 20231026
  Transmission Date: 20240110
  Serious: Yes (Disabling)
  Sender: FDA-Public Use
  Company Number: None

PATIENT
  Age: 69 Year
  Sex: Female
  Weight: 90.72 kg

DRUGS (12)
  1. RECLAST [Suspect]
     Active Substance: ZOLEDRONIC ACID
     Indication: Osteoporosis
  2. ALBUTEROL [Concomitant]
     Active Substance: ALBUTEROL
  3. TRELEGY ELLIPTA [Concomitant]
     Active Substance: FLUTICASONE FUROATE\UMECLIDINIUM BROMIDE\VILANTEROL TRIFENATATE
  4. OMEPRAZOLE [Concomitant]
     Active Substance: OMEPRAZOLE
  5. CALCIUM LACTATE [Concomitant]
     Active Substance: CALCIUM LACTATE
  6. MAGNESIUM [Concomitant]
     Active Substance: MAGNESIUM
  7. THERATEARS [Concomitant]
     Active Substance: CARBOXYMETHYLCELLULOSE SODIUM
  8. VITAMIN D [Concomitant]
     Active Substance: VITAMIN D NOS
  9. Curamed (curcumin) [Concomitant]
  10. Bosmed 500 (Boswellia) [Concomitant]
  11. IRON [Concomitant]
     Active Substance: IRON
  12. VITAMIN C [Concomitant]
     Active Substance: ASCORBIC ACID

REACTIONS (2)
  - Retinal tear [None]
  - Influenza like illness [None]
